FAERS Safety Report 5422423-4 (Version None)
Quarter: 2007Q3

REPORT INFORMATION
  Report Type: 
  Country: None (occurrence: None)
  Receive Date: 20070822
  Receipt Date: 20070813
  Transmission Date: 20080115
  Serious: Yes (Death, Hospitalization)
  Sender: FDA-Public Use
  Company Number: B0482047A

PATIENT
  Age: 50 Year
  Sex: Male
  Weight: 85 kg

DRUGS (7)
  1. AUGMENTIN '125' [Suspect]
     Indication: UPPER RESPIRATORY TRACT INFECTION
     Dosage: 875MG THREE TIMES PER DAY
     Route: 048
     Dates: start: 20070612
  2. ORAP [Concomitant]
     Dates: start: 19770101
  3. FLUANXOL [Concomitant]
     Route: 065
     Dates: start: 19770101
  4. SERLAIN [Concomitant]
     Dosage: 50MG UNKNOWN
     Route: 065
     Dates: start: 20010101
  5. GLUCOPHAGE [Concomitant]
     Dosage: 500MG UNKNOWN
     Route: 065
     Dates: start: 20030101
  6. COZAAR [Concomitant]
     Dosage: 59MG UNKNOWN
     Route: 065
     Dates: start: 20030101
  7. LIPANTHYL [Concomitant]
     Dosage: 167MG UNKNOWN
     Route: 065
     Dates: start: 20030101

REACTIONS (15)
  - ANAPHYLACTIC SHOCK [None]
  - BRAIN DEATH [None]
  - BRONCHOSPASM [None]
  - CARDIAC ARREST [None]
  - CYANOSIS [None]
  - DIARRHOEA [None]
  - FACE OEDEMA [None]
  - HYPERSENSITIVITY [None]
  - LARYNGEAL OEDEMA [None]
  - LIP SWELLING [None]
  - NAUSEA [None]
  - RASH [None]
  - RESPIRATORY ARREST [None]
  - SHOCK [None]
  - VOMITING [None]
